FAERS Safety Report 19574205 (Version 1)
Quarter: 2021Q3

REPORT INFORMATION
  Report Type: Report from Study
  Country: None (occurrence: PR)
  Receive Date: 20210719
  Receipt Date: 20210719
  Transmission Date: 20211014
  Serious: Yes (Other)
  Sender: FDA-Public Use
  Company Number: PR-ABBVIE-21K-131-3992995-00

PATIENT
  Age: 43 Year
  Sex: Female
  Weight: 57.66 kg

DRUGS (4)
  1. HUMIRA [Suspect]
     Active Substance: ADALIMUMAB
     Indication: COLITIS ULCERATIVE
     Route: 058
     Dates: start: 202003, end: 20210522
  2. INTESTINEX [Concomitant]
     Indication: COLITIS ULCERATIVE
     Route: 048
     Dates: start: 201908
  3. MESALAMINE. [Concomitant]
     Active Substance: MESALAMINE
     Indication: COLITIS ULCERATIVE
     Route: 048
     Dates: start: 201908
  4. PANTOPRAZOLE [Concomitant]
     Active Substance: PANTOPRAZOLE
     Indication: COLITIS ULCERATIVE
     Route: 048
     Dates: start: 201908

REACTIONS (1)
  - Hemiplegia [Recovering/Resolving]

NARRATIVE: CASE EVENT DATE: 202102
